FAERS Safety Report 14224970 (Version 3)
Quarter: 2017Q4

REPORT INFORMATION
  Report Type: Spontaneous
  Country: US (occurrence: US)
  Receive Date: 20171127
  Receipt Date: 20171229
  Transmission Date: 20180321
  Serious: Yes (Hospitalization)
  Sender: FDA-Public Use
  Company Number: US-B.I. PHARMACEUTICALS,INC./RIDGEFIELD-2017-BI-063059

PATIENT
  Age: 78 Year
  Sex: Male
  Weight: 71.67 kg

DRUGS (2)
  1. PRADAXA [Suspect]
     Active Substance: DABIGATRAN ETEXILATE MESYLATE
     Indication: ATRIAL FIBRILLATION
     Route: 048
     Dates: start: 20110714
  2. TRIAMTERENE. [Concomitant]
     Active Substance: TRIAMTERENE
     Indication: ATRIAL FIBRILLATION
     Route: 065
     Dates: end: 201612

REACTIONS (2)
  - Arterial occlusive disease [Recovered/Resolved]
  - Angina unstable [Recovered/Resolved]

NARRATIVE: CASE EVENT DATE: 201612
